FAERS Safety Report 16992154 (Version 1)
Quarter: 2019Q4

REPORT INFORMATION
  Report Type: Spontaneous
  Country: US (occurrence: US)
  Receive Date: 20191105
  Receipt Date: 20191105
  Transmission Date: 20200122
  Serious: No
  Sender: FDA-Public Use
  Company Number: US-009507513-1911USA001013

PATIENT
  Sex: Male
  Weight: 76.2 kg

DRUGS (14)
  1. SINEMET [Suspect]
     Active Substance: CARBIDOPA\LEVODOPA
     Dosage: 2.5 TABLETS, QD (1X/DAY) IN THE MORNING
     Route: 048
     Dates: start: 2019, end: 2019
  2. SINEMET [Suspect]
     Active Substance: CARBIDOPA\LEVODOPA
     Dosage: 2 TABLET, TID (3X/DAY) IN THE MORNING
     Route: 048
     Dates: start: 2019, end: 2019
  3. AMANTADINE. [Suspect]
     Active Substance: AMANTADINE HYDROCHLORIDE
     Indication: DYSKINESIA
     Dosage: 3 CAPSULES (205.5 MG), QD (1X/DAY) AT BEDTIME(PM)
     Route: 048
     Dates: start: 20190109, end: 201907
  4. LOSARTAN. [Concomitant]
     Active Substance: LOSARTAN
  5. METFORMIN [Concomitant]
     Active Substance: METFORMIN HYDROCHLORIDE
     Dosage: 500 MILLIGRAM
  6. TAMSULOSIN HYDROCHLORIDE. [Concomitant]
     Active Substance: TAMSULOSIN HYDROCHLORIDE
  7. DONEPEZIL. [Concomitant]
     Active Substance: DONEPEZIL
  8. SINEMET [Suspect]
     Active Substance: CARBIDOPA\LEVODOPA
     Indication: PARKINSON^S DISEASE
     Dosage: UNK UNK, QID (4X/DAY)
     Route: 048
     Dates: end: 2019
  9. VITAMIN D (UNSPECIFIED) [Concomitant]
     Active Substance: VITAMIN D NOS
     Dosage: UNK
     Dates: start: 2019
  10. AMLODIPINE [Concomitant]
     Active Substance: AMLODIPINE BESYLATE
  11. SINEMET [Suspect]
     Active Substance: CARBIDOPA\LEVODOPA
     Dosage: 2 TABLETS QID (4X/DAY) IN THE MORNING
     Route: 048
     Dates: start: 2019
  12. AMANTADINE. [Suspect]
     Active Substance: AMANTADINE HYDROCHLORIDE
     Dosage: 4 CAPSULES (274 MG), QD (1X/DAY) AT BEDTIME
     Route: 048
     Dates: start: 201907
  13. SINEMET [Concomitant]
     Active Substance: CARBIDOPA\LEVODOPA
     Dosage: AT BEDTIME
  14. CLONAZEPAM. [Concomitant]
     Active Substance: CLONAZEPAM
     Dosage: 5 MILLIGRAM

REACTIONS (7)
  - Fall [Unknown]
  - Sluggishness [Unknown]
  - Eye complication associated with device [Unknown]
  - Excessive eye blinking [Unknown]
  - Balance disorder [Unknown]
  - Weight decreased [Unknown]
  - Dyskinesia [Recovering/Resolving]

NARRATIVE: CASE EVENT DATE: 2019
